FAERS Safety Report 5826213-X (Version None)
Quarter: 2008Q3

REPORT INFORMATION
  Report Type: 
  Country: None (occurrence: None)
  Receive Date: 20080729
  Receipt Date: 20080717
  Transmission Date: 20090109
  Serious: Yes (Other)
  Sender: FDA-Public Use
  Company Number: DE-PFIZER INC-2006084765

PATIENT
  Sex: Male
  Weight: 74 kg

DRUGS (6)
  1. SU-011,248 [Suspect]
     Indication: METASTATIC RENAL CELL CARCINOMA
     Route: 048
     Dates: start: 20060607, end: 20060704
  2. PANTOPRAZOLE SODIUM [Concomitant]
     Route: 048
     Dates: start: 20060306, end: 20060626
  3. ACCUZIDE [Concomitant]
     Route: 048
  4. SUCRALFATE [Concomitant]
     Route: 048
  5. HYALURONIC ACID [Concomitant]
     Route: 048
  6. NORVASC [Concomitant]
     Dosage: TEXT:5 MG
     Route: 048
     Dates: start: 20060329, end: 20060625

REACTIONS (1)
  - CHEST PAIN [None]
